FAERS Safety Report 8520482-3 (Version None)
Quarter: 2012Q3

REPORT INFORMATION
  Report Type: 
  Country: None (occurrence: None)
  Receive Date: 20120719
  Receipt Date: 20120709
  Transmission Date: 20120928
  Serious: Yes (Hospitalization)
  Sender: FDA-Public Use
  Company Number: IT-BRISTOL-MYERS SQUIBB COMPANY-16692006

PATIENT
  Age: 75 Year
  Sex: Female

DRUGS (5)
  1. GLUCOPHAGE [Suspect]
     Indication: DIABETES MELLITUS
     Dosage: STRENGTH:500MG
     Route: 048
     Dates: start: 20120601
  2. ATENOLOL [Concomitant]
     Indication: HYPERTENSION
     Route: 048
  3. ASPIRIN [Suspect]
     Indication: ISCHAEMIC HEART DISEASE PROPHYLAXIS
     Dosage: STRENGTH:100MG
     Route: 048
     Dates: start: 20120601, end: 20120604
  4. MICARDIS HCT [Concomitant]
     Indication: HYPERTENSION
     Dosage: STRENGTH:40/12.5
     Route: 048
  5. ROSUVASTATIN [Concomitant]
     Indication: DYSLIPIDAEMIA
     Dosage: 10MG
     Route: 048

REACTIONS (2)
  - GASTRITIS [None]
  - NAUSEA [None]
